FAERS Safety Report 5441077-4 (Version None)
Quarter: 2007Q3

REPORT INFORMATION
  Report Type: 
  Country: None (occurrence: None)
  Receive Date: 20070831
  Receipt Date: 20070820
  Transmission Date: 20080115
  Serious: Yes (Death, Other)
  Sender: FDA-Public Use
  Company Number: US-PFIZER INC-2007046816

PATIENT
  Sex: Female
  Weight: 113.4 kg

DRUGS (1)
  1. BEXTRA [Suspect]
     Indication: CARPAL TUNNEL SYNDROME
     Route: 048
     Dates: start: 20010101, end: 20040504

REACTIONS (4)
  - ORGAN FAILURE [None]
  - RUPTURED CEREBRAL ANEURYSM [None]
  - STEVENS-JOHNSON SYNDROME [None]
  - THROMBOSIS [None]
